FAERS Safety Report 7621568-8 (Version None)
Quarter: 2011Q3

REPORT INFORMATION
  Report Type: 
  Country: None (occurrence: None)
  Receive Date: 20110719
  Receipt Date: 20110628
  Transmission Date: 20111222
  Serious: Yes (Hospitalization)
  Sender: FDA-Public Use
  Company Number: US-BAYER-2011-056053

PATIENT
  Sex: Male

DRUGS (2)
  1. PREDNISONE [Concomitant]
     Indication: PULMONARY FUNCTION TEST DECREASED
  2. CIPROFLOXACIN HCL [Suspect]
     Indication: PULMONARY FUNCTION TEST DECREASED

REACTIONS (1)
  - PULMONARY FUNCTION TEST DECREASED [None]
